FAERS Safety Report 5775357-X (Version None)
Quarter: 2008Q2

REPORT INFORMATION
  Report Type: 
  Country: None (occurrence: None)
  Receive Date: 20080613
  Receipt Date: 20080603
  Transmission Date: 20081010
  Serious: No
  Sender: FDA-Public Use
  Company Number: 2008BI012650

PATIENT
  Age: 23 Year
  Sex: Female

DRUGS (3)
  1. TYSABRI [Suspect]
     Indication: MULTIPLE SCLEROSIS
     Dosage: 300 MG;QM;IV
     Route: 042
     Dates: start: 20080307
  2. CYMBALTA [Concomitant]
  3. LAMICTAL [Concomitant]

REACTIONS (7)
  - ABDOMINAL DISTENSION [None]
  - FATIGUE [None]
  - HEADACHE [None]
  - INFUSION RELATED REACTION [None]
  - NAUSEA [None]
  - PARAESTHESIA [None]
  - VOMITING [None]
